FAERS Safety Report 6112964-9 (Version None)
Quarter: 2009Q1

REPORT INFORMATION
  Report Type: 
  Country: None (occurrence: None)
  Receive Date: 20090312
  Receipt Date: 20090309
  Transmission Date: 20090719
  Serious: Yes (Other)
  Sender: FDA-Public Use
  Company Number: US-TEVA-184005USA

PATIENT
  Sex: Female

DRUGS (4)
  1. LAMOTRIGINE TABLETS [Suspect]
     Indication: AFFECTIVE DISORDER
     Route: 048
     Dates: start: 20080701, end: 20081201
  2. INVEGA [Concomitant]
  3. CLONAZEPAM [Concomitant]
  4. BUPROPION HCL [Concomitant]

REACTIONS (4)
  - APHASIA [None]
  - COUGH [None]
  - DYSARTHRIA [None]
  - VOCAL CORD ATROPHY [None]
